FAERS Safety Report 11671995 (Version 1)
Quarter: 2015Q4

REPORT INFORMATION
  Report Type: Spontaneous
  Country: IT (occurrence: IT)
  Receive Date: 20151028
  Receipt Date: 20151028
  Transmission Date: 20160304
  Serious: Yes (Hospitalization)
  Sender: FDA-Public Use
  Company Number: IT-ROCHE-1649813

PATIENT
  Age: 58 Year
  Sex: Female

DRUGS (7)
  1. METHOTREXATE [Concomitant]
     Active Substance: METHOTREXATE
     Route: 065
  2. URBASON [Concomitant]
     Active Substance: METHYLPREDNISOLONE
     Route: 065
  3. CACIT VITAMINE D3 [Concomitant]
     Active Substance: CALCIUM CARBONATE\CHOLECALCIFEROL
     Dosage: 30 SACHETS 500 MG / 440 IU
     Route: 065
  4. ROACTEMRA [Suspect]
     Active Substance: TOCILIZUMAB
     Indication: RHEUMATOID ARTHRITIS
     Route: 058
     Dates: start: 20141214, end: 20151016
  5. FOLINA (ITALY) [Concomitant]
     Route: 065
  6. VALSARTAN. [Concomitant]
     Active Substance: VALSARTAN
     Route: 065
  7. DIBASE [Concomitant]
     Active Substance: CHOLECALCIFEROL
     Dosage: ^25,000 IU / 2.5 ML ORAL SOLUTION^ 1 X 2.5 ML VIAL
     Route: 048

REACTIONS (3)
  - Cellulitis [Unknown]
  - Flushing [Unknown]
  - Swelling [Unknown]

NARRATIVE: CASE EVENT DATE: 20151014
